FAERS Safety Report 23674589 (Version 1)
Quarter: 2024Q1

REPORT INFORMATION
  Report Type: Spontaneous
  Country: HR (occurrence: HR)
  Receive Date: 20240326
  Receipt Date: 20240326
  Transmission Date: 20240410
  Serious: Yes (Other)
  Sender: FDA-Public Use
  Company Number: None

PATIENT
  Age: 41 Year
  Sex: Female
  Weight: 70 kg

DRUGS (2)
  1. PLEGRIDY [Suspect]
     Active Substance: PEGINTERFERON BETA-1A
     Indication: Multiple sclerosis
     Dosage: DRUG STRENGTH 125 UG DOSAGE ONCE EVERY TWO WEEKS
     Route: 050
     Dates: start: 20240126, end: 20240306
  2. PLEGRIDY [Suspect]
     Active Substance: PEGINTERFERON BETA-1A
     Indication: Multiple sclerosis
     Dosage: DRUG STRENGTH 125 UG DOSAGE ONCE EVERY TWO WEEKS
     Route: 050
     Dates: start: 20240126, end: 20240306

REACTIONS (3)
  - Rash [Not Recovered/Not Resolved]
  - Injection site erythema [Unknown]
  - Injection site rash [Not Recovered/Not Resolved]

NARRATIVE: CASE EVENT DATE: 20240128
